FAERS Safety Report 17776189 (Version 3)
Quarter: 2024Q1

REPORT INFORMATION
  Report Type: Report from Study
  Country: US (occurrence: US)
  Receive Date: 20200513
  Receipt Date: 20240130
  Transmission Date: 20240410
  Serious: Yes (Hospitalization, Other)
  Sender: FDA-Public Use
  Company Number: US-ACADIA PHARMACEUTICALS INC.-ACA-2019-013158

PATIENT
  Age: 64 Year
  Sex: Male

DRUGS (12)
  1. NUPLAZID [Suspect]
     Active Substance: PIMAVANSERIN TARTRATE
     Indication: Parkinson^s disease
     Dosage: 34 MG, QD
     Route: 048
     Dates: start: 20190313
  2. NUPLAZID [Suspect]
     Active Substance: PIMAVANSERIN TARTRATE
     Indication: Hallucination, visual
     Dosage: 34 MG, QD
     Route: 048
     Dates: start: 20230825
  3. IRBESARTAN [Concomitant]
     Active Substance: IRBESARTAN
  4. FLUDROCORTISONE [Concomitant]
     Active Substance: FLUDROCORTISONE
  5. BACLOFEN [Concomitant]
     Active Substance: BACLOFEN
  6. CARBIDOPA\LEVODOPA [Concomitant]
     Active Substance: CARBIDOPA\LEVODOPA
  7. ENTACAPONE [Concomitant]
     Active Substance: ENTACAPONE
  8. SILODOSIN [Concomitant]
     Active Substance: SILODOSIN
  9. MELATONIN [Concomitant]
     Active Substance: MELATONIN
  10. NORTRIPTYLINE [Concomitant]
     Active Substance: NORTRIPTYLINE
  11. ENOXAPARIN [Concomitant]
     Active Substance: ENOXAPARIN
  12. ACETAMINOPHEN\OXYCODONE HYDROCHLORIDE [Concomitant]
     Active Substance: ACETAMINOPHEN\OXYCODONE HYDROCHLORIDE

REACTIONS (10)
  - Dizziness [Not Recovered/Not Resolved]
  - Hip fracture [Recovered/Resolved]
  - Hip arthroplasty [Recovered/Resolved]
  - Anaesthetic complication [Recovered/Resolved]
  - Delirium [Not Recovered/Not Resolved]
  - Fall [Recovered/Resolved]
  - Product dose omission issue [Recovered/Resolved]
  - Decreased appetite [Not Recovered/Not Resolved]
  - Pruritus [Not Recovered/Not Resolved]
  - Dry skin [Not Recovered/Not Resolved]

NARRATIVE: CASE EVENT DATE: 20190501
